FAERS Safety Report 14419219 (Version 5)
Quarter: 2018Q1

REPORT INFORMATION
  Report Type: Report from Study
  Country: BR (occurrence: BR)
  Receive Date: 20180122
  Receipt Date: 20180227
  Transmission Date: 20180509
  Serious: Yes (Death, Life-Threatening, Hospitalization, Other)
  Sender: FDA-Public Use
  Company Number: BR-ALEXION PHARMACEUTICALS INC-A201800563

PATIENT
  Age: 49 Year
  Sex: Male

DRUGS (5)
  1. SOLIRIS [Suspect]
     Active Substance: ECULIZUMAB
     Dosage: 900 MG, Q2W
     Route: 042
     Dates: start: 20150903
  2. MAREVAN [Concomitant]
     Active Substance: WARFARIN SODIUM
     Indication: PRODUCT USED FOR UNKNOWN INDICATION
     Route: 065
  3. SOLIRIS [Suspect]
     Active Substance: ECULIZUMAB
     Dosage: UNK
     Route: 065
  4. SOLIRIS [Suspect]
     Active Substance: ECULIZUMAB
     Dosage: 900 MG, Q2W
     Route: 042
     Dates: start: 20150903, end: 20170916
  5. SOLIRIS [Suspect]
     Active Substance: ECULIZUMAB
     Indication: PAROXYSMAL NOCTURNAL HAEMOGLOBINURIA
     Dosage: 600 MG, QW
     Route: 042
     Dates: start: 20150806, end: 20150827

REACTIONS (18)
  - Abdominal pain upper [Unknown]
  - Back pain [Unknown]
  - Dyspnoea [Unknown]
  - Condition aggravated [Unknown]
  - Acute kidney injury [Unknown]
  - Inappropriate schedule of drug administration [Recovered/Resolved]
  - Haemorrhagic stroke [Fatal]
  - Device issue [Unknown]
  - Cough [Unknown]
  - Aortic rupture [Fatal]
  - Blood pressure increased [Unknown]
  - Musculoskeletal pain [Unknown]
  - Immunodeficiency [Unknown]
  - Hypertensive emergency [Unknown]
  - Pain in extremity [Unknown]
  - Asthenia [Unknown]
  - Disease progression [Unknown]
  - Contrast media reaction [Unknown]

NARRATIVE: CASE EVENT DATE: 2016
